FAERS Safety Report 7140987-X (Version None)
Quarter: 2010Q4

REPORT INFORMATION
  Report Type: 
  Country: None (occurrence: None)
  Receive Date: 20101207
  Receipt Date: 20101125
  Transmission Date: 20110411
  Serious: Yes (Hospitalization, Other)
  Sender: FDA-Public Use
  Company Number: JP-TEVA-258169ISR

PATIENT
  Sex: Male
  Weight: 49.3 kg

DRUGS (4)
  1. CISPLATIN [Suspect]
     Indication: OESOPHAGEAL CARCINOMA
     Route: 042
     Dates: start: 20100825, end: 20100829
  2. CISPLATIN [Suspect]
     Route: 042
     Dates: start: 20100924, end: 20100928
  3. FLUOROURACIL [Suspect]
     Indication: OESOPHAGEAL CARCINOMA
     Route: 042
     Dates: start: 20100825, end: 20100829
  4. FLUOROURACIL [Suspect]
     Route: 042
     Dates: start: 20100924, end: 20100928

REACTIONS (3)
  - INTERSTITIAL LUNG DISEASE [None]
  - OESOPHAGITIS [None]
  - STOMATITIS [None]
